FAERS Safety Report 25488985 (Version 2)
Quarter: 2025Q3

REPORT INFORMATION
  Report Type: Other
  Country: JP (occurrence: JP)
  Receive Date: 20250627
  Receipt Date: 20250701
  Transmission Date: 20251020
  Serious: No
  Sender: EMD SERONO INC
  Company Number: JP-Merck Healthcare KGaA-2025028180

PATIENT
  Age: 74 Year
  Sex: Male
  Weight: 65 kg

DRUGS (4)
  1. TEPMETKO [Suspect]
     Active Substance: TEPOTINIB HYDROCHLORIDE
     Indication: Lung adenocarcinoma stage IV
  2. TEPMETKO [Suspect]
     Active Substance: TEPOTINIB HYDROCHLORIDE
  3. AMLODIPINE BESYLATE [Suspect]
     Active Substance: AMLODIPINE BESYLATE
     Indication: Hypertension
  4. VALSARTAN [Concomitant]
     Active Substance: VALSARTAN
     Indication: Hypertension

REACTIONS (5)
  - Oedema [Recovering/Resolving]
  - Hypoalbuminaemia [Unknown]
  - Weight increased [Unknown]
  - Blood creatinine abnormal [Unknown]
  - Blood albumin abnormal [Unknown]
